FAERS Safety Report 5104478-X (Version None)
Quarter: 2006Q3

REPORT INFORMATION
  Report Type: 
  Country: None (occurrence: None)
  Receive Date: 20060908
  Receipt Date: 20060908
  Transmission Date: 20061208
  Serious: No
  Sender: FDA-Public Use
  Company Number: None

PATIENT
  Sex: Male
  Weight: 96.1626 kg

DRUGS (12)
  1. FLUVASTATIN 80 MG [Suspect]
     Indication: BLOOD CHOLESTEROL INCREASED
     Dosage: 80 MG ONCE DAILY PO
     Route: 048
     Dates: start: 20050318, end: 20050909
  2. ACETAMINOPHEN [Concomitant]
  3. ALPROSTADIL [Concomitant]
  4. AMITRIPTYLINE HCL [Concomitant]
  5. ASPIRIN [Concomitant]
  6. CLONAZEPAM [Concomitant]
  7. FLUNISOLIDE [Concomitant]
  8. FLUOXETINE HCL [Concomitant]
  9. HYDROCHLOROTHIAZIDE [Concomitant]
  10. MULTIVITS W/MINERALS [Concomitant]
  11. NAPROXEN [Concomitant]
  12. NIACIN-NIASPAN-KOS [Concomitant]

REACTIONS (1)
  - MYOSITIS [None]
